FAERS Safety Report 15494813 (Version 1)
Quarter: 2018Q4

REPORT INFORMATION
  Report Type: Spontaneous
  Country: US (occurrence: US)
  Receive Date: 20181012
  Receipt Date: 20181012
  Transmission Date: 20190205
  Serious: No
  Sender: FDA-Public Use
  Company Number: US-MAYNE PHARMA-2017MYN001883

PATIENT

DRUGS (3)
  1. FENTANYL. [Suspect]
     Active Substance: FENTANYL
     Indication: PRODUCT USED FOR UNKNOWN INDICATION
  2. MODAFINIL. [Interacting]
     Active Substance: MODAFINIL
     Dosage: 200 MG, UNK
  3. MODAFINIL. [Interacting]
     Active Substance: MODAFINIL
     Dosage: 100 MG, UNK

REACTIONS (3)
  - Drug effect decreased [Unknown]
  - Withdrawal syndrome [Unknown]
  - Drug interaction [Unknown]
